FAERS Safety Report 9257812 (Version 2)
Quarter: 2013Q2

REPORT INFORMATION
  Report Type: Spontaneous
  Country: DE (occurrence: None)
  Receive Date: 20130423
  Receipt Date: 20130521
  Transmission Date: 20140414
  Serious: Yes (Death)
  Sender: FDA-Public Use
  Company Number: 1304-516

PATIENT
  Age: 61 Year
  Sex: Female

DRUGS (9)
  1. EYLEA (AFLIBERCEPT) (INJECTION) (AFLIBERCEPT) [Suspect]
     Indication: AGE-RELATED MACULAR DEGENERATION
     Route: 031
     Dates: start: 20130208, end: 20130208
  2. NORVASC [Concomitant]
  3. OLMETEC (OLMESARTAN MEDOXOMIL) (TABLET) [Concomitant]
  4. JUVELA (TOCOPHERYL ACETATE) [Concomitant]
  5. MEDICON (DEXTROMETHORPHAN HYDROBROMIDE) [Concomitant]
  6. LUTORAL (CHLORMADINONE ACETATE) [Concomitant]
  7. PREMARIN (ESTROGENS CONJUGATED) [Concomitant]
  8. ZYRTEC (CETIRIZINE HYDROCHLORIDE) [Concomitant]
  9. TAVEGYL (CLEMASTINE FUMARATE) [Concomitant]

REACTIONS (1)
  - Death [None]
